FAERS Safety Report 10509219 (Version 3)
Quarter: 2015Q3

REPORT INFORMATION
  Report Type: Report from Study
  Country: US (occurrence: US)
  Receive Date: 20141009
  Receipt Date: 20150818
  Transmission Date: 20151125
  Serious: No
  Sender: FDA-Public Use
  Company Number: US-GILEAD-2014-0117797

PATIENT
  Age: 68 Year
  Sex: Female

DRUGS (1)
  1. AMBRISENTAN [Suspect]
     Active Substance: AMBRISENTAN
     Indication: PULMONARY ARTERIAL HYPERTENSION
     Dosage: 5 MG, QD
     Route: 065
     Dates: start: 20140918

REACTIONS (7)
  - Epistaxis [Unknown]
  - Peripheral swelling [Unknown]
  - Blood urine present [Unknown]
  - Cardiac discomfort [Unknown]
  - Hypotension [Unknown]
  - Ocular hyperaemia [Unknown]
  - Nasopharyngitis [Unknown]
